FAERS Safety Report 8455409-6 (Version None)
Quarter: 2012Q2

REPORT INFORMATION
  Report Type: 
  Country: None (occurrence: None)
  Receive Date: 20120621
  Receipt Date: 20120612
  Transmission Date: 20120825
  Serious: Yes (Other)
  Sender: FDA-Public Use
  Company Number: BE-BRISTOL-MYERS SQUIBB COMPANY-16679763

PATIENT
  Age: 50 Year
  Sex: Male

DRUGS (5)
  1. METFORMIN HCL [Concomitant]
  2. KENACORT [Suspect]
     Indication: RETINITIS
     Dosage: ROUTE: INTRAVITREAL
     Dates: start: 20091030
  3. SIMVASTATIN [Concomitant]
  4. ASPIRIN [Concomitant]
  5. PERINDOPRIL ERBUMINE [Concomitant]

REACTIONS (2)
  - BLINDNESS [None]
  - INCORRECT ROUTE OF DRUG ADMINISTRATION [None]
